FAERS Safety Report 11316525 (Version 1)
Quarter: 2015Q3

REPORT INFORMATION
  Report Type: Spontaneous
  Country: US (occurrence: US)
  Receive Date: 20150728
  Receipt Date: 20150728
  Transmission Date: 20151125
  Serious: No
  Sender: FDA-Public Use
  Company Number: US-DRREDDYS-USA/USA/14/0043068

PATIENT
  Age: 63 Year
  Sex: Male

DRUGS (2)
  1. AMLODIPINE BESYLATE + BENAZEPRIL HYDROCHLORIDE CAPSULES 5 MG/40 MG + 1 [Suspect]
     Active Substance: AMLODIPINE BESYLATE\BENAZEPRIL HYDROCHLORIDE
     Indication: BLOOD PRESSURE MEASUREMENT
     Route: 065
  2. INDAPAMIDE. [Suspect]
     Active Substance: INDAPAMIDE
     Indication: BLOOD PRESSURE MEASUREMENT
     Route: 065

REACTIONS (2)
  - Drug ineffective [Unknown]
  - Product quality issue [Unknown]
